FAERS Safety Report 6788417-1 (Version None)
Quarter: 2010Q2

REPORT INFORMATION
  Report Type: 
  Country: None (occurrence: None)
  Receive Date: 20100623
  Receipt Date: 20080313
  Transmission Date: 20101027
  Serious: No
  Sender: FDA-Public Use
  Company Number: US-PFIZER INC-2008023532

PATIENT
  Sex: Female
  Weight: 79.545 kg

DRUGS (3)
  1. DEPO-PROVERA SUSPENSION/INJ [Suspect]
     Indication: OVARIAN CYST
     Route: 030
     Dates: start: 20071217
  2. DEPO-PROVERA SUSPENSION/INJ [Suspect]
     Indication: UTERINE HAEMORRHAGE
  3. DEPO-PROVERA SUSPENSION/INJ [Suspect]
     Indication: PELVIC PAIN

REACTIONS (1)
  - URTICARIA [None]
